FAERS Safety Report 20639313 (Version 1)
Quarter: 2022Q1

REPORT INFORMATION
  Report Type: Spontaneous
  Country: US (occurrence: US)
  Receive Date: 20220326
  Receipt Date: 20220326
  Transmission Date: 20220424
  Serious: Yes (Other)
  Sender: FDA-Public Use
  Company Number: US-LUPIN PHARMACEUTICALS INC.-2022-04283

PATIENT
  Age: 60 Year
  Sex: Male

DRUGS (4)
  1. FLUOXETINE [Suspect]
     Active Substance: FLUOXETINE HYDROCHLORIDE
     Indication: Major depression
     Dosage: 40 MG, QD
     Route: 065
  2. FLUOXETINE [Suspect]
     Active Substance: FLUOXETINE HYDROCHLORIDE
     Indication: Generalised anxiety disorder
  3. BUPROPION [Suspect]
     Active Substance: BUPROPION
     Indication: Major depression
     Dosage: 300 MG, QD
     Route: 065
  4. BUPROPION [Suspect]
     Active Substance: BUPROPION
     Indication: Generalised anxiety disorder

REACTIONS (3)
  - Therapy non-responder [Unknown]
  - Anxiety [Recovered/Resolved]
  - Depression [Recovered/Resolved]
